FAERS Safety Report 9401551 (Version 3)
Quarter: 2017Q4

REPORT INFORMATION
  Report Type: Spontaneous
  Country: US (occurrence: US)
  Receive Date: 20130716
  Receipt Date: 20171002
  Transmission Date: 20180321
  Serious: Yes (Hospitalization, Other)
  Sender: FDA-Public Use
  Company Number: US-ROCHE-1248558

PATIENT
  Age: 66 Year
  Sex: Female

DRUGS (8)
  1. BONIVA [Suspect]
     Active Substance: IBANDRONATE SODIUM
     Route: 048
     Dates: end: 201107
  2. BONIVA [Suspect]
     Active Substance: IBANDRONATE SODIUM
     Route: 048
     Dates: start: 20060605, end: 20071017
  3. FOSAMAX [Suspect]
     Active Substance: ALENDRONATE SODIUM
     Indication: OSTEOPOROSIS
     Route: 065
     Dates: start: 199908, end: 200605
  4. ALENDRONATE SODIUM. [Suspect]
     Active Substance: ALENDRONATE SODIUM
     Indication: OSTEOPOROSIS
     Route: 065
     Dates: start: 20080213, end: 20100714
  5. FOSAMAX [Suspect]
     Active Substance: ALENDRONATE SODIUM
     Route: 065
     Dates: start: 19990715, end: 20060408
  6. BONIVA [Suspect]
     Active Substance: IBANDRONATE SODIUM
     Indication: OSTEOPOROSIS
     Route: 048
     Dates: start: 200601, end: 200710
  7. FOSAMAX [Suspect]
     Active Substance: ALENDRONATE SODIUM
     Route: 065
     Dates: start: 20071017
  8. FOSAMAX [Suspect]
     Active Substance: ALENDRONATE SODIUM
     Route: 065
     Dates: start: 200802, end: 201008

REACTIONS (6)
  - Emotional distress [Unknown]
  - Low turnover osteopathy [Unknown]
  - Anxiety [Unknown]
  - Femur fracture [Unknown]
  - Nightmare [Unknown]
  - Depression [Unknown]

NARRATIVE: CASE EVENT DATE: 20120325
